FAERS Safety Report 10136694 (Version 1)
Quarter: 2014Q2

REPORT INFORMATION
  Report Type: Spontaneous
  Country: US (occurrence: None)
  Receive Date: 20140425
  Receipt Date: 20140425
  Transmission Date: 20141212
  Serious: Yes (Death)
  Sender: FDA-Public Use
  Company Number: UTC-047368

PATIENT
  Age: 58 Year
  Sex: Female

DRUGS (1)
  1. TYVASO [Suspect]
     Indication: PULMONARY ARTERIAL HYPERTENSION
     Dates: start: 20120224

REACTIONS (5)
  - Cardiac failure [None]
  - Renal failure [None]
  - Pulmonary arterial hypertension [None]
  - Disease progression [None]
  - Drug ineffective [None]
